FAERS Safety Report 16167246 (Version 2)
Quarter: 2019Q2

REPORT INFORMATION
  Report Type: Spontaneous
  Country: US (occurrence: US)
  Receive Date: 20190408
  Receipt Date: 20190423
  Transmission Date: 20190711
  Serious: No
  Sender: FDA-Public Use
  Company Number: US-AMGEN-USASP2019052018

PATIENT
  Age: 65 Year
  Sex: Female
  Weight: 44.44 kg

DRUGS (3)
  1. PROLIA [Suspect]
     Active Substance: DENOSUMAB
     Indication: OSTEOPOROSIS POSTMENOPAUSAL
     Dosage: 60 MILLIGRAM, Q6MO
     Route: 065
     Dates: start: 20190414
  2. DILTIAZEM. [Concomitant]
     Active Substance: DILTIAZEM
     Dosage: 90 MILLIGRAM, QD
  3. SINGULAIR [Concomitant]
     Active Substance: MONTELUKAST SODIUM
     Dosage: 5 MILLIGRAM, QD

REACTIONS (4)
  - Musculoskeletal pain [Unknown]
  - Insomnia [Unknown]
  - Sluggishness [Unknown]
  - Myalgia [Unknown]
